FAERS Safety Report 18190295 (Version 1)
Quarter: 2020Q3

REPORT INFORMATION
  Report Type: Spontaneous
  Country: US (occurrence: US)
  Receive Date: 20200825
  Receipt Date: 20200825
  Transmission Date: 20201103
  Serious: No
  Sender: FDA-Public Use
  Company Number: US-CELLTRION INC.-2019US026165

PATIENT

DRUGS (7)
  1. PREDNISONE. [Suspect]
     Active Substance: PREDNISONE
     Indication: CONDITION AGGRAVATED
     Dosage: UNK
  2. URSODIOL. [Concomitant]
     Active Substance: URSODIOL
     Dosage: 600 MG, QD
  3. INFLECTRA [Suspect]
     Active Substance: INFLIXIMAB-DYYB
     Indication: COLITIS ULCERATIVE
     Dosage: UNK
     Route: 041
     Dates: start: 20191019
  4. FAMOTIDINE. [Concomitant]
     Active Substance: FAMOTIDINE
     Indication: DYSPEPSIA
  5. IRON [Concomitant]
     Active Substance: IRON
     Dosage: 27 MG
  6. MESALAMINE. [Concomitant]
     Active Substance: MESALAMINE
     Indication: COLITIS ULCERATIVE
     Dosage: 1.2 G
  7. FAMOTIDINE. [Concomitant]
     Active Substance: FAMOTIDINE
     Indication: DYSPEPSIA

REACTIONS (2)
  - Liver function test increased [Recovering/Resolving]
  - Musculoskeletal disorder [Unknown]

NARRATIVE: CASE EVENT DATE: 20191028
